FAERS Safety Report 5305092-3 (Version None)
Quarter: 2007Q2

REPORT INFORMATION
  Report Type: 
  Country: None (occurrence: None)
  Receive Date: 20070423
  Receipt Date: 20070411
  Transmission Date: 20071010
  Serious: Yes (Other)
  Sender: FDA-Public Use
  Company Number: KR-GILEAD-2007-0011885

PATIENT
  Age: 45 Year
  Sex: Male

DRUGS (2)
  1. ADEFOVIR DIPIVOXIL KIT [Suspect]
     Dates: start: 20070202
  2. LAMIVUDINE [Suspect]

REACTIONS (2)
  - FACIAL PALSY [None]
  - NECK PAIN [None]
